FAERS Safety Report 11260530 (Version 1)
Quarter: 2015Q3

REPORT INFORMATION
  Report Type: Spontaneous
  Country: CH (occurrence: AU)
  Receive Date: 20150710
  Receipt Date: 20150710
  Transmission Date: 20151125
  Serious: Yes (Other)
  Sender: FDA-Public Use
  Company Number: CH-LPDUSPRD-20140788

PATIENT
  Age: 41 Year
  Sex: Female
  Weight: 55 kg

DRUGS (1)
  1. FERINJECT [Suspect]
     Active Substance: FERRIC CARBOXYMALTOSE
     Dosage: 1000 MG
     Route: 041
     Dates: start: 20141124, end: 20141124

REACTIONS (4)
  - Chest pain [Recovered/Resolved with Sequelae]
  - Dyspnoea [Recovered/Resolved with Sequelae]
  - Wheezing [Recovered/Resolved with Sequelae]
  - Chest discomfort [Recovered/Resolved with Sequelae]

NARRATIVE: CASE EVENT DATE: 20141124
